FAERS Safety Report 8660642 (Version 4)
Quarter: 2013Q1

REPORT INFORMATION
  Report Type: Spontaneous
  Country: US (occurrence: US)
  Receive Date: 20120711
  Receipt Date: 20130128
  Transmission Date: 20140127
  Serious: Yes (Hospitalization, Disabling, Other)
  Sender: FDA-Public Use
  Company Number: US-009507513-1207USA00055

PATIENT
  Sex: Female
  Weight: 86.26 kg

DRUGS (5)
  1. FOSAMAX [Suspect]
     Indication: OSTEOPOROSIS
     Dosage: 70 MG, UNK
     Route: 048
  2. FOSAMAX [Suspect]
     Indication: OSTEOPENIA
     Dosage: 70 MG, UNK
     Route: 048
     Dates: start: 200603, end: 200708
  3. FOSAMAX [Suspect]
     Dosage: UNK
     Route: 048
     Dates: start: 1995
  4. CALCIUM (UNSPECIFIED) [Concomitant]
     Dosage: UNK
     Dates: start: 1995
  5. HORMONES (UNSPECIFIED) [Concomitant]
     Dosage: UNK
     Dates: start: 1991, end: 200609

REACTIONS (19)
  - Femur fracture [Unknown]
  - Osteoporosis [Unknown]
  - Internal fixation of fracture [Unknown]
  - Femur fracture [Unknown]
  - Knee arthroplasty [Unknown]
  - Renal failure [Unknown]
  - Cholecystectomy [Unknown]
  - Stress fracture [Unknown]
  - Cardiac pacemaker insertion [Unknown]
  - Low turnover osteopathy [Unknown]
  - Coronary arterial stent insertion [Unknown]
  - Rheumatoid arthritis [Unknown]
  - Hysterectomy [Unknown]
  - Hypertension [Unknown]
  - Blood cholesterol increased [Unknown]
  - Bradycardia [Unknown]
  - Breast calcifications [Unknown]
  - Fall [Unknown]
  - Osteoarthritis [Unknown]
